FAERS Safety Report 10479507 (Version 1)
Quarter: 2014Q3

REPORT INFORMATION
  Report Type: Report from Study
  Country: US (occurrence: US)
  Receive Date: 20140926
  Receipt Date: 20140926
  Transmission Date: 20150326
  Serious: Yes (Other)
  Sender: FDA-Public Use
  Company Number: US-ALEXION PHARMACEUTICALS INC-A201102458

PATIENT

DRUGS (1)
  1. SOLIRIS [Suspect]
     Active Substance: ECULIZUMAB
     Indication: PAROXYSMAL NOCTURNAL HAEMOGLOBINURIA

REACTIONS (17)
  - Blood count abnormal [Unknown]
  - Palpitations [Unknown]
  - Epistaxis [Unknown]
  - Fatigue [Unknown]
  - VIIth nerve paralysis [Unknown]
  - Nausea [Unknown]
  - Hyperhidrosis [Unknown]
  - Nasopharyngitis [Unknown]
  - Haemolysis [Unknown]
  - Pruritus [Unknown]
  - Pain in extremity [Unknown]
  - Packed red blood cell transfusion [Unknown]
  - Headache [Unknown]
  - Balance disorder [Unknown]
  - Dyspnoea [Unknown]
  - Dizziness [Unknown]
  - Infection [Unknown]
